FAERS Safety Report 7580421-9 (Version None)
Quarter: 2011Q2

REPORT INFORMATION
  Report Type: 
  Country: None (occurrence: None)
  Receive Date: 20110629
  Receipt Date: 20110617
  Transmission Date: 20111010
  Serious: Yes (Other)
  Sender: FDA-Public Use
  Company Number: US-AMGEN-USASP2011031311

PATIENT
  Sex: Female

DRUGS (1)
  1. ENBREL [Suspect]
     Indication: RHEUMATOID ARTHRITIS
     Dosage: UNK

REACTIONS (6)
  - FATIGUE [None]
  - MALAISE [None]
  - PAIN [None]
  - WEIGHT DECREASED [None]
  - IRRITABLE BOWEL SYNDROME [None]
  - HYPERACUSIS [None]
